FAERS Safety Report 5962460-4 (Version None)
Quarter: 2008Q4

REPORT INFORMATION
  Report Type: 
  Country: None (occurrence: None)
  Receive Date: 20081121
  Receipt Date: 20081110
  Transmission Date: 20090506
  Serious: Yes (Other)
  Sender: FDA-Public Use
  Company Number: US-PFIZER INC-2008071820

PATIENT
  Sex: Female
  Weight: 65.454 kg

DRUGS (10)
  1. XALATAN [Suspect]
     Indication: INTRAOCULAR PRESSURE TEST
     Route: 047
     Dates: start: 20080521
  2. LUNESTA [Concomitant]
  3. GLYBURIDE [Concomitant]
  4. LEVOXYL [Concomitant]
  5. NEXIUM [Concomitant]
  6. MONTELUKAST SODIUM [Concomitant]
  7. METFORMIN HCL [Concomitant]
  8. VITAMINS [Concomitant]
  9. ASCORBIC ACID [Concomitant]
  10. CALCIUM [Concomitant]

REACTIONS (3)
  - FURUNCLE [None]
  - MIGRAINE [None]
  - PELVIC FRACTURE [None]
